FAERS Safety Report 24557981 (Version 1)
Quarter: 2024Q4

REPORT INFORMATION
  Report Type: Spontaneous
  Country: US (occurrence: US)
  Receive Date: 20241028
  Receipt Date: 20241028
  Transmission Date: 20250115
  Serious: Yes (Other)
  Sender: RANBAXY
  Company Number: US-SUN PHARMACEUTICAL INDUSTRIES LTD-2024R1-475253

PATIENT
  Sex: Male

DRUGS (2)
  1. ILUMYA [Suspect]
     Active Substance: TILDRAKIZUMAB-ASMN
     Indication: Psoriasis
     Dosage: UNK (100 MG/ML , AT WEEK 0, WEEK 4, THEN EVERY 12 WEEKS THEREAFTER)
     Route: 065
     Dates: start: 20240515
  2. ILUMYA [Suspect]
     Active Substance: TILDRAKIZUMAB-ASMN
     Dosage: UNK (100 MG/ML , AT WEEK 0, WEEK 4, THEN EVERY 12 WEEKS THEREAFTER)
     Route: 065
     Dates: start: 20240625

REACTIONS (1)
  - Prostate cancer [Unknown]
